FAERS Safety Report 13232267 (Version 1)
Quarter: 2017Q1

REPORT INFORMATION
  Report Type: Spontaneous
  Country: US (occurrence: US)
  Receive Date: 20170214
  Receipt Date: 20170214
  Transmission Date: 20170428
  Serious: No
  Sender: FDA-Public Use
  Company Number: ALCN2017US001313

PATIENT
  Age: 54 Year
  Sex: Female

DRUGS (2)
  1. SYSTANE ULTRA [Concomitant]
     Active Substance: POLYETHYLENE GLYCOL 400\PROPYLENE GLYCOL
     Indication: DRY EYE
     Dosage: 1 TO 2 GTT, PRN
     Route: 047
     Dates: start: 2016
  2. GENTEAL MODERATE TO SEVERE GEL DROPS [Suspect]
     Active Substance: CARBOXYMETHYLCELLULOSE SODIUM\HYPROMELLOSES
     Indication: DRY EYE
     Dosage: 1 DF, QHS
     Route: 047
     Dates: start: 201701, end: 20170209

REACTIONS (1)
  - Eyelid margin crusting [Recovered/Resolved]

NARRATIVE: CASE EVENT DATE: 201701
